FAERS Safety Report 8349597-X (Version None)
Quarter: 2012Q2

REPORT INFORMATION
  Report Type: 
  Country: None (occurrence: None)
  Receive Date: 20120510
  Receipt Date: 20120504
  Transmission Date: 20120825
  Serious: Yes (Other)
  Sender: FDA-Public Use
  Company Number: PHHY2012NL029622

PATIENT
  Sex: Female
  Weight: 76 kg

DRUGS (15)
  1. COTRIM [Concomitant]
  2. PRILOSEC [Concomitant]
     Dosage: 20 MG, UNK
  3. ACETYLCYSTEINE [Concomitant]
     Dosage: 600 MG, UNK
  4. MYCOPHENOLATE MOFETIL (CELLCEPT) [Concomitant]
     Dosage: 500 MG, BID
  5. TACROLIMUS [Concomitant]
     Dosage: 2 MG, BID
  6. MAGNESIUM HYDROXIDE TAB [Concomitant]
  7. CALCIUM CARBONATE [Concomitant]
     Dosage: 1 G, UNK
  8. ACTONEL [Concomitant]
     Dosage: 35 MG,  PER WEEK
  9. SUMATRIPTAN SUCCINATE [Concomitant]
  10. SELOKEEN [Concomitant]
  11. ZITHROMAX [Concomitant]
     Dosage: 250 MG, EVERY OTHER DAY
  12. TOBI [Suspect]
     Indication: PSEUDOMONAS INFECTION
     Dosage: 4 DF, BID
     Dates: start: 20111101, end: 20120322
  13. VENTOLIN [Concomitant]
  14. PREDNISOLONE [Concomitant]
  15. FLUTICASONE PROPIONATE [Concomitant]

REACTIONS (9)
  - DIZZINESS [None]
  - NAUSEA [None]
  - DYSPNOEA [None]
  - APHONIA [None]
  - WHEEZING [None]
  - DRUG LEVEL INCREASED [None]
  - TINNITUS [None]
  - DYSPHONIA [None]
  - OROPHARYNGEAL PAIN [None]
